FAERS Safety Report 8016963-1 (Version None)
Quarter: 2012Q1

REPORT INFORMATION
  Report Type: 
  Country: None (occurrence: None)
  Receive Date: 20120102
  Receipt Date: 20111226
  Transmission Date: 20120608
  Serious: Yes (Death, Hospitalization)
  Sender: FDA-Public Use
  Company Number: PHHY2011JP109554

PATIENT
  Age: 63 Year
  Sex: Female

DRUGS (2)
  1. PREDNISOLONE [Suspect]
     Indication: INTERSTITIAL LUNG DISEASE
     Dosage: UNK UKN, UNK
  2. CYCLOSPORINE [Concomitant]
     Indication: INTERSTITIAL LUNG DISEASE
     Dosage: UNK UKN, UNK

REACTIONS (7)
  - LUNG INFILTRATION [None]
  - PRODUCTIVE COUGH [None]
  - COUGH [None]
  - RESPIRATORY FAILURE [None]
  - PULMONARY TUBERCULOSIS [None]
  - PULMONARY CAVITATION [None]
  - PYREXIA [None]
